FAERS Safety Report 7949127-8 (Version None)
Quarter: 2011Q4

REPORT INFORMATION
  Report Type: 
  Country: None (occurrence: None)
  Receive Date: 20111123
  Receipt Date: 20111103
  Transmission Date: 20120403
  Serious: Yes (Other)
  Sender: FDA-Public Use
  Company Number: 2011P1009723

PATIENT
  Age: 78 Year
  Sex: Male
  Weight: 78.0187 kg

DRUGS (20)
  1. MIRALAX [Concomitant]
  2. UNSPECIFIED PROTEIN SUPPLEMENT [Concomitant]
  3. LOTRISONE [Concomitant]
  4. SANTYL [Suspect]
     Indication: DECUBITUS ULCER
     Dosage: QD;TOP
     Route: 061
     Dates: start: 20111019, end: 20110101
  5. LEVAQUIN [Suspect]
     Indication: PNEUMONIA ASPIRATION
     Dates: start: 20111001
  6. MORPHINE SULFATE [Concomitant]
  7. SENNA [Concomitant]
  8. SYNTHROID [Concomitant]
  9. PREVACID [Concomitant]
  10. ACETAMINOPHEN [Concomitant]
  11. DULCOLAX [Concomitant]
  12. SINEMET [Concomitant]
  13. COMTAN [Concomitant]
  14. LASIX [Concomitant]
  15. OCUFLOX [Concomitant]
  16. POTASSIUM CHLORIDE [Concomitant]
  17. OXYCODONE HCL [Concomitant]
  18. ATIVAN [Concomitant]
  19. XOPENEX [Concomitant]
  20. ZANAFLEX [Concomitant]

REACTIONS (4)
  - PNEUMONIA ASPIRATION [None]
  - APPLICATION SITE DISCOLOURATION [None]
  - WOUND SECRETION [None]
  - DIARRHOEA [None]
